FAERS Safety Report 8413788-X (Version None)
Quarter: 2012Q2

REPORT INFORMATION
  Report Type: 
  Country: None (occurrence: None)
  Receive Date: 20120605
  Receipt Date: 20120523
  Transmission Date: 20120825
  Serious: No
  Sender: FDA-Public Use
  Company Number: US-ASTRAZENECA-2012SE24838

PATIENT
  Sex: Female

DRUGS (1)
  1. SYMBICORT [Suspect]
     Dosage: 160/4.5 MCG, TWO PUFS, TWO TIMES A DAY
     Route: 055

REACTIONS (2)
  - OFF LABEL USE [None]
  - CHEST DISCOMFORT [None]
